FAERS Safety Report 9997576 (Version 1)
Quarter: 2014Q1

REPORT INFORMATION
  Report Type: Spontaneous
  Country: US (occurrence: US)
  Receive Date: 20140311
  Receipt Date: 20140311
  Transmission Date: 20141002
  Serious: No
  Sender: FDA-Public Use
  Company Number: US-JNJFOC-20140300354

PATIENT
  Sex: Female
  Weight: 122.47 kg

DRUGS (8)
  1. DURAGESIC [Suspect]
     Indication: PAIN
     Route: 062
     Dates: start: 201307
  2. NEURONTIN [Concomitant]
     Indication: NEURALGIA
     Route: 065
  3. LISINOPRIL [Concomitant]
     Indication: BLOOD PRESSURE
     Route: 065
  4. PLAVIX [Concomitant]
     Indication: BLOOD PRESSURE
     Route: 065
  5. LASIX [Concomitant]
     Indication: BLOOD PRESSURE
     Route: 065
  6. COREG [Concomitant]
     Indication: BLOOD PRESSURE
     Route: 065
  7. POTASSIUM [Concomitant]
     Indication: PRODUCT USED FOR UNKNOWN INDICATION
     Route: 065
  8. VICODIN [Concomitant]
     Indication: PRODUCT USED FOR UNKNOWN INDICATION
     Route: 065

REACTIONS (2)
  - Wrong technique in drug usage process [Unknown]
  - Product adhesion issue [Unknown]
